FAERS Safety Report 15963840 (Version 3)
Quarter: 2019Q2

REPORT INFORMATION
  Report Type: Report from Study
  Country: US (occurrence: US)
  Receive Date: 20190214
  Receipt Date: 20190415
  Transmission Date: 20190711
  Serious: Yes (Hospitalization)
  Sender: FDA-Public Use
  Company Number: US-ACTELION-A-NJ2018-178992

PATIENT
  Sex: Female

DRUGS (1)
  1. OPSUMIT [Suspect]
     Active Substance: MACITENTAN
     Indication: PRODUCT USED FOR UNKNOWN INDICATION
     Dosage: 10 MG, UNK
     Route: 048
     Dates: start: 20180731

REACTIONS (10)
  - Blood count abnormal [Unknown]
  - Weight decreased [Unknown]
  - Decreased appetite [Unknown]
  - Headache [Not Recovered/Not Resolved]
  - Ascites [Recovered/Resolved]
  - Product dose omission [Unknown]
  - Pleural effusion [Unknown]
  - Tremor [Unknown]
  - Dyspnoea [Unknown]
  - Nasal congestion [Not Recovered/Not Resolved]
